FAERS Safety Report 19789763 (Version 1)
Quarter: 2021Q3

REPORT INFORMATION
  Report Type: Spontaneous
  Country: US (occurrence: US)
  Receive Date: 20210904
  Receipt Date: 20210904
  Transmission Date: 20211014
  Serious: No
  Sender: FDA-Public Use
  Company Number: US-PURDUE-USA-2021-0261944

PATIENT

DRUGS (1)
  1. OXYCODONE/ ACETAMINOPHEN TABLETS [Suspect]
     Active Substance: ACETAMINOPHEN\OXYCODONE HYDROCHLORIDE
     Indication: PAIN
     Dosage: 5/325 MG, SINGLE
     Route: 048

REACTIONS (6)
  - Mental disorder [Unknown]
  - Drug withdrawal syndrome [Unknown]
  - Sitting disability [Unknown]
  - Muscle strain [Unknown]
  - Inadequate analgesia [Unknown]
  - Product quality issue [Unknown]
